FAERS Safety Report 12733435 (Version 2)
Quarter: 2016Q4

REPORT INFORMATION
  Report Type: Spontaneous
  Country: US (occurrence: US)
  Receive Date: 20160912
  Receipt Date: 20161104
  Transmission Date: 20170207
  Serious: Yes (Hospitalization)
  Sender: FDA-Public Use
  Company Number: US-JNJFOC-20160725709

PATIENT
  Sex: Male

DRUGS (7)
  1. XARELTO [Suspect]
     Active Substance: RIVAROXABAN
     Indication: THROMBOSIS PROPHYLAXIS
     Dosage: IN VARYING DOSES OF 15 AND 20 MG
     Route: 048
     Dates: start: 20130806, end: 20140731
  2. XARELTO [Suspect]
     Active Substance: RIVAROXABAN
     Indication: CEREBROVASCULAR ACCIDENT PROPHYLAXIS
     Dosage: IN VARYING DOSES OF 15 AND 20 MG
     Route: 048
     Dates: start: 20120224, end: 20120922
  3. XARELTO [Suspect]
     Active Substance: RIVAROXABAN
     Indication: ATRIAL FIBRILLATION
     Dosage: IN VARYING DOSES OF 15 AND 20 MG
     Route: 048
     Dates: start: 20120224, end: 20120922
  4. XARELTO [Suspect]
     Active Substance: RIVAROXABAN
     Indication: THROMBOSIS PROPHYLAXIS
     Dosage: IN VARYING DOSES OF 15 AND 20 MG
     Route: 048
     Dates: start: 20120224, end: 20120922
  5. XARELTO [Suspect]
     Active Substance: RIVAROXABAN
     Indication: CEREBROVASCULAR ACCIDENT PROPHYLAXIS
     Dosage: IN VARYING DOSES OF 15 AND 20 MG
     Route: 048
     Dates: start: 20130806, end: 20140731
  6. XARELTO [Suspect]
     Active Substance: RIVAROXABAN
     Indication: ATRIAL FIBRILLATION
     Dosage: IN VARYING DOSES OF 15 AND 20 MG
     Route: 048
     Dates: start: 20130806, end: 20140731
  7. ASPIRIN. [Suspect]
     Active Substance: ASPIRIN
     Indication: PRODUCT USED FOR UNKNOWN INDICATION
     Route: 048

REACTIONS (1)
  - Rectal haemorrhage [Unknown]

NARRATIVE: CASE EVENT DATE: 2012
